FAERS Safety Report 8008493-8 (Version None)
Quarter: 2011Q4

REPORT INFORMATION
  Report Type: 
  Country: None (occurrence: None)
  Receive Date: 20111227
  Receipt Date: 20111216
  Transmission Date: 20120403
  Serious: Yes (Other)
  Sender: FDA-Public Use
  Company Number: US-ASTRAZENECA-2011SE76265

PATIENT
  Age: 17 Year
  Sex: Female

DRUGS (2)
  1. SEROQUEL [Suspect]
     Indication: ANXIETY
     Route: 048
     Dates: start: 20100215
  2. SEROQUEL [Suspect]
     Route: 048
     Dates: start: 20111101

REACTIONS (2)
  - MENORRHAGIA [None]
  - DRUG PRESCRIBING ERROR [None]
